FAERS Safety Report 7156786-9 (Version None)
Quarter: 2010Q4

REPORT INFORMATION
  Report Type: 
  Country: None (occurrence: None)
  Receive Date: 20101214
  Receipt Date: 20101208
  Transmission Date: 20110411
  Serious: Yes (Other)
  Sender: FDA-Public Use
  Company Number: BR-PFIZER INC-2010167107

PATIENT
  Age: 91 Year
  Sex: Male

DRUGS (2)
  1. ADVIL EXTRA ALIVIO [Suspect]
     Indication: PAIN
     Route: 048
  2. DIPYRONE [Concomitant]
     Indication: PAIN
     Dosage: UNK DOSE EVERY 6 HOURS

REACTIONS (1)
  - CHOKING [None]
